FAERS Safety Report 4673996-0 (Version None)
Quarter: 2005Q2

REPORT INFORMATION
  Report Type: 
  Country: None (occurrence: None)
  Receive Date: 20050525
  Receipt Date: 20050506
  Transmission Date: 20051028
  Serious: Yes (Hospitalization)
  Sender: FDA-Public Use
  Company Number: 2005PL000029

PATIENT
  Age: 55 Year
  Sex: Male

DRUGS (4)
  1. AZATHIOPRINE [Suspect]
     Indication: DYSHIDROSIS
     Dosage: 100 MG QD PO
     Route: 048
  2. DERMOVATE [Concomitant]
  3. NYSTATIN [Concomitant]
  4. NEOMYCIN [Concomitant]

REACTIONS (7)
  - BONE MARROW DEPRESSION [None]
  - BONE MARROW TOXICITY [None]
  - CONDITION AGGRAVATED [None]
  - DYSHIDROSIS [None]
  - LETHARGY [None]
  - MALAISE [None]
  - PANCYTOPENIA [None]
